FAERS Safety Report 6881771-1 (Version None)
Quarter: 2010Q3

REPORT INFORMATION
  Report Type: 
  Country: None (occurrence: None)
  Receive Date: 20100729
  Receipt Date: 20100723
  Transmission Date: 20110219
  Serious: Yes (Hospitalization)
  Sender: FDA-Public Use
  Company Number: FR-WYE-G06446510

PATIENT
  Sex: Female

DRUGS (1)
  1. CHILDREN'S ADVIL [Suspect]
     Indication: UPPER RESPIRATORY TRACT INFECTION
     Dosage: THERAPEUTIC DOSES
     Route: 048
     Dates: start: 20090725, end: 20090727

REACTIONS (4)
  - GASTRITIS HAEMORRHAGIC [None]
  - HAEMATEMESIS [None]
  - MELAENA [None]
  - PYREXIA [None]
